FAERS Safety Report 21297933 (Version 1)
Quarter: 2022Q3

REPORT INFORMATION
  Report Type: Spontaneous
  Country: US (occurrence: None)
  Receive Date: 20220902
  Receipt Date: 20220902
  Transmission Date: 20221026
  Serious: Yes (Hospitalization)
  Sender: FDA-Public Use
  Company Number: None

PATIENT
  Age: 66 Year
  Sex: Female

DRUGS (1)
  1. DIMETHYL FUMARATE [Suspect]
     Active Substance: DIMETHYL FUMARATE
     Dosage: OTHER QUANTITY : 240;?FREQUENCY : TWICE A DAY;?
     Route: 048

REACTIONS (1)
  - Ulcer [None]

NARRATIVE: CASE EVENT DATE: 20220902
